FAERS Safety Report 8904211 (Version 3)
Quarter: 2014Q1

REPORT INFORMATION
  Report Type: Spontaneous
  Country: US (occurrence: US)
  Receive Date: 20121112
  Receipt Date: 20140127
  Transmission Date: 20141002
  Serious: Yes (Death)
  Sender: FDA-Public Use
  Company Number: US-INCYTE CORPORATION-2012IN002265

PATIENT
  Sex: Female
  Weight: 74.83 kg

DRUGS (14)
  1. JAKAFI [Suspect]
     Indication: MYELOFIBROSIS
     Dosage: 5 MG, BID
     Route: 048
     Dates: start: 20120809, end: 20121017
  2. ATROVENT [Concomitant]
  3. XOPENEX [Concomitant]
  4. ADCIRCA [Concomitant]
  5. ALLOPURINOL [Concomitant]
  6. AXID [Concomitant]
  7. DEXILANT [Concomitant]
  8. GABAPENTIN [Concomitant]
  9. LASIX [Concomitant]
  10. NOVOLOG 70/30 [Concomitant]
  11. PREDNISONE [Concomitant]
  12. SYMBICORT [Concomitant]
  13. SYNTHROID [Concomitant]
  14. ZETIA [Concomitant]

REACTIONS (2)
  - Disease progression [Fatal]
  - Drug ineffective [Unknown]
